FAERS Safety Report 18403778 (Version 1)
Quarter: 2020Q4

REPORT INFORMATION
  Report Type: Other
  Country: IT (occurrence: IT)
  Receive Date: 20201020
  Receipt Date: 20201020
  Transmission Date: 20210114
  Serious: Yes (Other)
  Sender: FDA-Public Use
  Company Number: IT-ROCHE-2692906

PATIENT
  Age: 69 Year
  Sex: Female

DRUGS (3)
  1. TRASTUZUMAB. [Suspect]
     Active Substance: TRASTUZUMAB
     Indication: BREAST CANCER METASTATIC
     Dosage: 8/6 MG/KG G1Q21
     Route: 065
     Dates: start: 2014, end: 2016
  2. TRASTUZUMAB EMTANSINE [Suspect]
     Active Substance: ADO-TRASTUZUMAB EMTANSINE
     Indication: BREAST CANCER METASTATIC
     Dosage: 3.6 MG/KG G1Q21
     Route: 065
     Dates: start: 2019, end: 2020
  3. PERTUZUMAB. [Suspect]
     Active Substance: PERTUZUMAB
     Indication: BREAST CANCER METASTATIC
     Dosage: 840/420 MG G1Q21
     Route: 065
     Dates: start: 2014, end: 2016

REACTIONS (6)
  - Ejection fraction decreased [Unknown]
  - Stomatitis [Unknown]
  - Cardiotoxicity [Recovering/Resolving]
  - Neutropenia [Unknown]
  - Ejection fraction decreased [Recovering/Resolving]
  - Cardiotoxicity [Unknown]

NARRATIVE: CASE EVENT DATE: 2016
